FAERS Safety Report 20003441 (Version 1)
Quarter: 2021Q4

REPORT INFORMATION
  Report Type: Report from Study
  Country: None (occurrence: US)
  Receive Date: 20211027
  Receipt Date: 20211027
  Transmission Date: 20220303
  Serious: Yes (Death, Other)
  Sender: FDA-Public Use
  Company Number: US-ABBVIE-21K-163-4137022-00

PATIENT
  Age: 81 Year
  Sex: Female

DRUGS (1)
  1. LEVOTHYROXINE [Suspect]
     Active Substance: LEVOTHYROXINE
     Indication: Product used for unknown indication
     Route: 048
     Dates: start: 1995

REACTIONS (3)
  - Death [Fatal]
  - Hospice care [Unknown]
  - Underweight [Unknown]

NARRATIVE: CASE EVENT DATE: 20211014
